FAERS Safety Report 6263630-0 (Version None)
Quarter: 2009Q3

REPORT INFORMATION
  Report Type: 
  Country: None (occurrence: None)
  Receive Date: 20090710
  Receipt Date: 20090701
  Transmission Date: 20100115
  Serious: Yes (Other)
  Sender: FDA-Public Use
  Company Number: BR-ROCHE-627995

PATIENT
  Age: 65 Year
  Sex: Female

DRUGS (2)
  1. BONIVA [Suspect]
     Indication: OSTEOPOROSIS
     Route: 048
     Dates: start: 20090101, end: 20090101
  2. CALCIUM [Concomitant]

REACTIONS (3)
  - BLOOD URINE PRESENT [None]
  - CARDIAC DISORDER [None]
  - OCCULT BLOOD [None]
